FAERS Safety Report 7004652-1 (Version None)
Quarter: 2010Q3

REPORT INFORMATION
  Report Type: 
  Country: None (occurrence: None)
  Receive Date: 20100921
  Receipt Date: 20100913
  Transmission Date: 20110219
  Serious: Yes (Life-Threatening, Hospitalization)
  Sender: FDA-Public Use
  Company Number: US-US-EMD SERONO, INC.-7016540

PATIENT
  Sex: Female
  Weight: 90 kg

DRUGS (2)
  1. REBIF [Suspect]
     Indication: MULTIPLE SCLEROSIS
     Dates: start: 20090201, end: 20100801
  2. VITAMIN D [Concomitant]
     Indication: VITAMIN D DEFICIENCY
     Dates: start: 20090101

REACTIONS (8)
  - CONFUSIONAL STATE [None]
  - DIZZINESS [None]
  - ENCEPHALITIS HERPES [None]
  - GRAND MAL CONVULSION [None]
  - PNEUMONIA [None]
  - PNEUMOTHORAX [None]
  - RESPIRATORY FAILURE [None]
  - STATUS EPILEPTICUS [None]
